FAERS Safety Report 5629214-X (Version None)
Quarter: 2008Q1

REPORT INFORMATION
  Report Type: 
  Country: None (occurrence: None)
  Receive Date: 20080217
  Receipt Date: 20070912
  Transmission Date: 20080703
  Serious: No
  Sender: FDA-Public Use
  Company Number: US-BAYER-US-2007-034622

PATIENT
  Age: 33 Year
  Sex: Female
  Weight: 64 kg

DRUGS (2)
  1. FINACEA [Suspect]
     Indication: ROSACEA
     Dosage: TOTAL DAILY DOSE: 15 %  UNIT DOSE: 15 %
     Route: 061
     Dates: start: 20070824
  2. TETRACYCLINE [Concomitant]
     Indication: ROSACEA
     Dosage: TOTAL DAILY DOSE: 500 MG  UNIT DOSE: 500 MG
     Dates: start: 20070824

REACTIONS (1)
  - ORAL HERPES [None]
